FAERS Safety Report 14528900 (Version 1)
Quarter: 2018Q1

REPORT INFORMATION
  Report Type: Spontaneous
  Country: US (occurrence: US)
  Receive Date: 20180213
  Receipt Date: 20180213
  Transmission Date: 20180509
  Serious: Yes (Hospitalization)
  Sender: FDA-Public Use
  Company Number: None

PATIENT
  Sex: Female

DRUGS (12)
  1. GLIPIZIDE. [Concomitant]
     Active Substance: GLIPIZIDE
  2. VITAMIN D3 [Concomitant]
     Active Substance: CHOLECALCIFEROL
  3. TAMOXIFEN [Concomitant]
     Active Substance: TAMOXIFEN
  4. CELEBREX [Concomitant]
     Active Substance: CELECOXIB
  5. HYDROCHLOROT [Concomitant]
     Active Substance: HYDROCHLOROTHIAZIDE
  6. ZOLEDRONIC ACID, 5MG [Suspect]
     Active Substance: ZOLEDRONIC ACID
     Indication: OSTEOPOROSIS
     Dosage: 5 MG ONCE EVERY YEAR  INTRAVENOUS (NOT OTHERWISE SPECIFIED)
     Route: 042
     Dates: start: 20130513
  7. OXYCODONE AND ACETAMINOPHEN [Concomitant]
     Active Substance: ACETAMINOPHEN\OXYCODONE HYDROCHLORIDE
  8. PRAVASTATIN. [Concomitant]
     Active Substance: PRAVASTATIN
  9. ROBAXIN [Concomitant]
     Active Substance: METHOCARBAMOL
  10. MAGNESIUM [Concomitant]
     Active Substance: MAGNESIUM
  11. RESTORIL [Concomitant]
     Active Substance: TEMAZEPAM
  12. CALCIUM CIT [Concomitant]

REACTIONS (1)
  - Hospitalisation [None]
